FAERS Safety Report 10340534 (Version 1)
Quarter: 2014Q3

REPORT INFORMATION
  Report Type: Spontaneous
  Country: US (occurrence: None)
  Receive Date: 20140722
  Receipt Date: 20140722
  Transmission Date: 20150326
  Serious: Yes (Hospitalization)
  Sender: FDA-Public Use
  Company Number: IPC201407-000356

PATIENT
  Age: 72 Year
  Sex: Male

DRUGS (3)
  1. LISINOPRIL (LISINOPRIL) [Suspect]
     Active Substance: LISINOPRIL
  2. METFORMIN HYDROCHLORIDE (METFORMIN HYDROCHLORIDE) [Suspect]
     Active Substance: METFORMIN HYDROCHLORIDE
  3. DONEPEZIL HYDROCHLORIDE (DONEPEZIL) [Suspect]
     Active Substance: DONEPEZIL HYDROCHLORIDE

REACTIONS (5)
  - Loss of consciousness [None]
  - Atrial fibrillation [None]
  - Sick sinus syndrome [None]
  - Bradyarrhythmia [None]
  - Dizziness [None]
